FAERS Safety Report 7425786-3 (Version None)
Quarter: 2011Q2

REPORT INFORMATION
  Report Type: 
  Country: None (occurrence: None)
  Receive Date: 20110420
  Receipt Date: 20110412
  Transmission Date: 20111010
  Serious: Yes (Hospitalization, Other)
  Sender: FDA-Public Use
  Company Number: US-ASTRAZENECA-2009UW06936

PATIENT
  Age: 30037 Day
  Sex: Male

DRUGS (1)
  1. NEXIUM [Suspect]
     Route: 048
     Dates: start: 20000101

REACTIONS (2)
  - PROSTATE CANCER [None]
  - GASTRIC ULCER HAEMORRHAGE [None]
